FAERS Safety Report 4973363-6 (Version None)
Quarter: 2006Q2

REPORT INFORMATION
  Report Type: 
  Country: None (occurrence: None)
  Receive Date: 20060414
  Receipt Date: 20060410
  Transmission Date: 20061013
  Serious: Yes (Hospitalization)
  Sender: FDA-Public Use
  Company Number: ES-BOEHRINGER INGELHEIM PHARMACEUTICALS, INC.-2006-DE-01885GD

PATIENT
  Age: 82 Year
  Sex: Male

DRUGS (5)
  1. PERSANTIN [Suspect]
     Route: 048
  2. LEXATIN [Suspect]
     Route: 048
  3. ECAZIDE [Suspect]
     Dosage: 50 MG CAPTOPRIL/25 MG HYDROCHLOROTHIAZIDE
     Route: 048
  4. ASTUDAL [Suspect]
     Route: 048
  5. INSULINA MIXTARD HUMANA [Suspect]
     Indication: DIABETES MELLITUS
     Dosage: 288 IU INSULIN, 672 IU INSULIN ISOFANICA

REACTIONS (1)
  - UPPER GASTROINTESTINAL HAEMORRHAGE [None]
